FAERS Safety Report 15472904 (Version 8)
Quarter: 2021Q2

REPORT INFORMATION
  Report Type: Spontaneous
  Country: US (occurrence: US)
  Receive Date: 20181008
  Receipt Date: 20210607
  Transmission Date: 20210716
  Serious: No
  Sender: FDA-Public Use
  Company Number: US-PFIZER INC-2018402109

PATIENT
  Age: 61 Year
  Sex: Female
  Weight: 106.12 kg

DRUGS (3)
  1. GABAPENTIN. [Suspect]
     Active Substance: GABAPENTIN
     Indication: NEUROPATHY PERIPHERAL
     Dosage: UNK
     Dates: start: 2010, end: 2010
  2. SULINDAC. [Suspect]
     Active Substance: SULINDAC
     Indication: ARTHRALGIA
     Dosage: UNK
     Route: 048
     Dates: start: 2010, end: 2010
  3. DILTIAZEM HCL [Suspect]
     Active Substance: DILTIAZEM HYDROCHLORIDE
     Dosage: UNK

REACTIONS (3)
  - Abdominal discomfort [Recovered/Resolved]
  - Drug hypersensitivity [Unknown]
  - Off label use [Unknown]
